FAERS Safety Report 9210324 (Version 2)
Quarter: 2013Q2

REPORT INFORMATION
  Report Type: Spontaneous
  Country: JP (occurrence: JP)
  Receive Date: 20130404
  Receipt Date: 20130416
  Transmission Date: 20140414
  Serious: No
  Sender: FDA-Public Use
  Company Number: JP-ELI_LILLY_AND_COMPANY-JP201303004048

PATIENT
  Age: 37 Year
  Sex: Female

DRUGS (4)
  1. HUMALOG LISPRO [Suspect]
     Indication: TYPE 1 DIABETES MELLITUS
     Dosage: UNK
     Route: 058
     Dates: start: 2006
  2. PROGESTERONE [Concomitant]
     Dosage: UNK, WEEKLY (1/W)
     Route: 058
  3. THYRADIN S [Concomitant]
     Indication: HYPOTHYROIDISM
     Dosage: UNK
     Route: 048
     Dates: start: 20100419, end: 20111220
  4. FOLIAMIN [Concomitant]
     Indication: FOLATE DEFICIENCY
     Dosage: UNK
     Route: 048
     Dates: start: 20110502, end: 20111203

REACTIONS (3)
  - Maternal exposure during pregnancy [Recovered/Resolved]
  - Hyperglycaemia [Recovered/Resolved]
  - Exposure during breast feeding [Unknown]
